FAERS Safety Report 14315604 (Version 4)
Quarter: 2018Q3

REPORT INFORMATION
  Report Type: Report from Study
  Country: FR (occurrence: FR)
  Receive Date: 20171221
  Receipt Date: 20180917
  Transmission Date: 20181010
  Serious: Yes (Death, Hospitalization, Other)
  Sender: FDA-Public Use
  Company Number: FR-BRISTOL-MYERS SQUIBB COMPANY-BMS-2017-115323

PATIENT
  Age: 67 Year
  Sex: Female

DRUGS (1)
  1. NIVOLUMAB [Suspect]
     Active Substance: NIVOLUMAB
     Indication: LUNG NEOPLASM MALIGNANT
     Dosage: 170 MG, Q2WK
     Route: 042
     Dates: start: 20170706

REACTIONS (10)
  - Aspartate aminotransferase increased [Recovering/Resolving]
  - Malnutrition [Unknown]
  - General physical health deterioration [Fatal]
  - Malignant neoplasm progression [Fatal]
  - Gastrointestinal disorder [Not Recovered/Not Resolved]
  - Hypotension [Unknown]
  - Dehydration [Unknown]
  - Renal failure [Unknown]
  - Alanine aminotransferase increased [Recovering/Resolving]
  - Blood alkaline phosphatase increased [Recovering/Resolving]

NARRATIVE: CASE EVENT DATE: 20170801
